FAERS Safety Report 18072455 (Version 1)
Quarter: 2020Q3

REPORT INFORMATION
  Report Type: Spontaneous
  Country: US (occurrence: US)
  Receive Date: 20200725
  Receipt Date: 20200725
  Transmission Date: 20201103
  Serious: No
  Sender: FDA-Public Use
  Company Number: None

PATIENT
  Age: 62 Year
  Sex: Female

DRUGS (1)
  1. FORTEO [Suspect]
     Active Substance: TERIPARATIDE
     Indication: OSTEOPOROSIS
     Route: 058
     Dates: start: 20200418

REACTIONS (12)
  - Rash [None]
  - Headache [None]
  - Taste disorder [None]
  - Insomnia [None]
  - Tinnitus [None]
  - Vision blurred [None]
  - Dizziness [None]
  - Therapy interrupted [None]
  - Muscular weakness [None]
  - Nausea [None]
  - Anxiety [None]
  - Illness [None]

NARRATIVE: CASE EVENT DATE: 20200418
